FAERS Safety Report 12372310 (Version 1)
Quarter: 2016Q2

REPORT INFORMATION
  Report Type: Spontaneous
  Country: MY (occurrence: MY)
  Receive Date: 20160516
  Receipt Date: 20160516
  Transmission Date: 20160815
  Serious: Yes (Death, Other)
  Sender: FDA-Public Use
  Company Number: MY-PFIZER INC-2016245754

PATIENT
  Age: 25 Year
  Sex: Female

DRUGS (2)
  1. CHLORAMPHENICOL [Suspect]
     Active Substance: CHLORAMPHENICOL
     Indication: MENINGITIS
     Dosage: 1 G, 3X/DAY
     Dates: start: 19510125, end: 19510205
  2. CHLORAMPHENICOL [Suspect]
     Active Substance: CHLORAMPHENICOL
     Indication: TYPHOID FEVER
     Dosage: 1 G, 3X/DAY, (BY WHICH TIME A FURTHER 15 G. HAD BEEN GIVEN)
     Dates: start: 19510213, end: 19510217

REACTIONS (2)
  - Drug ineffective [Fatal]
  - Meningitis [Fatal]
